FAERS Safety Report 7280062-7 (Version None)
Quarter: 2011Q1

REPORT INFORMATION
  Report Type: 
  Country: None (occurrence: None)
  Receive Date: 20110203
  Receipt Date: 20110203
  Transmission Date: 20110831
  Serious: Yes (Hospitalization, Other)
  Sender: FDA-Public Use
  Company Number: None

PATIENT
  Sex: Male
  Weight: 104.3273 kg

DRUGS (1)
  1. STRATTERA [Suspect]
     Indication: ATTENTION DEFICIT/HYPERACTIVITY DISORDER
     Dosage: 80MG ONCE PER DAY PO
     Route: 048
     Dates: start: 20101115, end: 20110130

REACTIONS (13)
  - PSYCHOTIC DISORDER [None]
  - IMPAIRED WORK ABILITY [None]
  - MENTAL IMPAIRMENT [None]
  - ABNORMAL BEHAVIOUR [None]
  - MOOD SWINGS [None]
  - AGITATION [None]
  - IRRITABILITY [None]
  - IMPULSIVE BEHAVIOUR [None]
  - FATIGUE [None]
  - ANGER [None]
  - LETHARGY [None]
  - HYPERSOMNIA [None]
  - AGGRESSION [None]
